FAERS Safety Report 5129857-6 (Version None)
Quarter: 2006Q4

REPORT INFORMATION
  Report Type: 
  Country: None (occurrence: None)
  Receive Date: 20061018
  Receipt Date: 20060828
  Transmission Date: 20070319
  Serious: Yes (Hospitalization, Disabling)
  Sender: FDA-Public Use
  Company Number: 2006UW17058

PATIENT
  Age: 4509 Day
  Sex: Male

DRUGS (1)
  1. ARIMIDEX [Suspect]
     Indication: GYNAECOMASTIA
     Route: 048
     Dates: start: 20060330, end: 20060823

REACTIONS (1)
  - EPIPHYSIOLYSIS [None]
